FAERS Safety Report 18140509 (Version 3)
Quarter: 2020Q4

REPORT INFORMATION
  Report Type: Spontaneous
  Country: CO (occurrence: CO)
  Receive Date: 20200812
  Receipt Date: 20201110
  Transmission Date: 20210113
  Serious: Yes (Other)
  Sender: FDA-Public Use
  Company Number: CO-PFIZER INC-2020309235

PATIENT
  Age: 7 Decade
  Sex: Female

DRUGS (1)
  1. XELJANZ [Suspect]
     Active Substance: TOFACITINIB CITRATE
     Indication: RHEUMATOID ARTHRITIS
     Dosage: 5 MG, 2X/DAY
     Route: 048

REACTIONS (5)
  - Dysgraphia [Not Recovered/Not Resolved]
  - Gastrooesophageal reflux disease [Unknown]
  - Cerebral thrombosis [Recovered/Resolved]
  - Memory impairment [Not Recovered/Not Resolved]
  - Facial asymmetry [Recovering/Resolving]
